FAERS Safety Report 5105570-6 (Version None)
Quarter: 2006Q3

REPORT INFORMATION
  Report Type: 
  Country: None (occurrence: None)
  Receive Date: 20060915
  Receipt Date: 20060831
  Transmission Date: 20061208
  Serious: Yes (Other)
  Sender: FDA-Public Use
  Company Number: US-JNJFOC-20060900433

PATIENT
  Sex: Female
  Weight: 99.34 kg

DRUGS (6)
  1. DURAGESIC-100 [Suspect]
     Indication: PAIN
     Route: 062
  2. PLAQUERIL [Concomitant]
     Indication: MUSCLE RIGIDITY
     Route: 048
  3. FLEXERIL [Concomitant]
     Dosage: 1-3 TIMES A DAY
     Route: 048
  4. ATIVAN [Concomitant]
     Indication: ANXIETY
     Dosage: 1-3 TIMES A DAY
     Route: 048
  5. GEODON [Concomitant]
     Route: 048
  6. AMBIEN [Concomitant]
     Route: 048

REACTIONS (3)
  - ABASIA [None]
  - DRUG INEFFECTIVE [None]
  - PAIN IN EXTREMITY [None]
